FAERS Safety Report 5501406-X (Version None)
Quarter: 2007Q4

REPORT INFORMATION
  Report Type: 
  Country: None (occurrence: None)
  Receive Date: 20071018
  Receipt Date: 20070308
  Transmission Date: 20080405
  Serious: Yes (Death)
  Sender: FDA-Public Use
  Company Number: 2007020119

PATIENT
  Age: 47 Year
  Sex: Male

DRUGS (1)
  1. NEURONTIN [Suspect]
     Dosage: 2100 MG (1 D)
     Dates: start: 20030201, end: 20030701

REACTIONS (1)
  - COMPLETED SUICIDE [None]
